FAERS Safety Report 6787688-5 (Version None)
Quarter: 2010Q2

REPORT INFORMATION
  Report Type: 
  Country: None (occurrence: None)
  Receive Date: 20100623
  Receipt Date: 20070824
  Transmission Date: 20101027
  Serious: No
  Sender: FDA-Public Use
  Company Number: US-PFIZER INC-2007070794

PATIENT
  Sex: Female
  Weight: 68 kg

DRUGS (4)
  1. COLESTID [Suspect]
     Indication: PROPHYLAXIS AGAINST DIARRHOEA
     Route: 048
     Dates: start: 20010101
  2. WARFARIN [Concomitant]
     Indication: THROMBOSIS
     Route: 048
  3. ANTIDIARRHOEAL MICROORGANISMS [Concomitant]
     Route: 048
  4. DIGESTIVES, INCL ENZYMES [Concomitant]
     Route: 048

REACTIONS (1)
  - FOREIGN BODY [None]
